FAERS Safety Report 7486354-0 (Version None)
Quarter: 2011Q2

REPORT INFORMATION
  Report Type: 
  Country: None (occurrence: None)
  Receive Date: 20110517
  Receipt Date: 20110510
  Transmission Date: 20111010
  Serious: Yes (Hospitalization)
  Sender: FDA-Public Use
  Company Number: PHHY2011NL39558

PATIENT
  Age: 38 Year
  Sex: Female

DRUGS (2)
  1. CEFUROXIME [Concomitant]
     Dosage: UNK UKN, UNK
  2. VANCOMYCIN [Suspect]
     Dosage: UNK UKN, UNK

REACTIONS (6)
  - NECROSIS [None]
  - VASCULITIS NECROTISING [None]
  - LEUKOCYTOCLASTIC VASCULITIS [None]
  - RASH [None]
  - NODULE [None]
  - PURPURA [None]
